FAERS Safety Report 12091852 (Version 2)
Quarter: 2016Q1

REPORT INFORMATION
  Report Type: Spontaneous
  Country: US (occurrence: US)
  Receive Date: 20160218
  Receipt Date: 20160315
  Transmission Date: 20160526
  Serious: Yes (Hospitalization)
  Sender: FDA-Public Use
  Company Number: US-009507513-1602USA008359

PATIENT
  Age: 59 Year
  Sex: Male

DRUGS (13)
  1. DUONEB [Concomitant]
     Active Substance: ALBUTEROL SULFATE\IPRATROPIUM BROMIDE
     Dosage: INHALATION
     Route: 055
  2. DOCUSATE SODIUM. [Concomitant]
     Active Substance: DOCUSATE SODIUM
  3. BUDESONIDE. [Concomitant]
     Active Substance: BUDESONIDE
     Dosage: INHALATION
     Route: 055
  4. EPOGEN [Concomitant]
     Active Substance: ERYTHROPOIETIN
  5. SEVELAMER [Concomitant]
     Active Substance: SEVELAMER
  6. FUROSEMIDE. [Concomitant]
     Active Substance: FUROSEMIDE
     Route: 048
  7. ATORVASTATIN [Concomitant]
     Active Substance: ATORVASTATIN
  8. TRAMADOL HYDROCHLORIDE. [Concomitant]
     Active Substance: TRAMADOL HYDROCHLORIDE
  9. INTEGRILIN [Suspect]
     Active Substance: EPTIFIBATIDE
     Indication: ACUTE MYOCARDIAL INFARCTION
     Dosage: UNK
     Dates: start: 20160211, end: 20160211
  10. ALLOPURINOL. [Concomitant]
     Active Substance: ALLOPURINOL
  11. DOXERCALCIFEROL. [Concomitant]
     Active Substance: DOXERCALCIFEROL
  12. SUCRALFATE. [Concomitant]
     Active Substance: SUCRALFATE
  13. PLAVIX [Concomitant]
     Active Substance: CLOPIDOGREL BISULFATE

REACTIONS (5)
  - Chest pain [Unknown]
  - Drug administration error [Unknown]
  - Dialysis [Not Recovered/Not Resolved]
  - Dyspnoea exertional [Unknown]
  - Gastrointestinal haemorrhage [Not Recovered/Not Resolved]

NARRATIVE: CASE EVENT DATE: 201602
